FAERS Safety Report 8709954 (Version 2)
Quarter: 2013Q4

REPORT INFORMATION
  Report Type: Spontaneous
  Country: US (occurrence: US)
  Receive Date: 20120806
  Receipt Date: 20131031
  Transmission Date: 20140711
  Serious: Yes (Hospitalization, Other)
  Sender: FDA-Public Use
  Company Number: US-009507513-2010SP004278

PATIENT
  Age: 23 Year
  Sex: Female
  Weight: 86.18 kg

DRUGS (4)
  1. NUVARING [Suspect]
     Indication: DYSFUNCTIONAL UTERINE BLEEDING
     Dates: start: 20071228, end: 20080117
  2. NUVARING [Suspect]
     Indication: CONTRACEPTION
  3. HORMONAL CONTRACEPTIVES (UNSPECIFIED) [Concomitant]
     Indication: PRODUCT USED FOR UNKNOWN INDICATION
     Dates: start: 20071228
  4. NONSTEROIDAL ANTI-INFLAMMATORY DRUG (UNSPECIFIED) [Concomitant]
     Indication: PRODUCT USED FOR UNKNOWN INDICATION
     Dosage: UNK UNK, PRN

REACTIONS (8)
  - Pulmonary embolism [Recovering/Resolving]
  - Chlamydia test positive [Unknown]
  - Muscle spasms [Unknown]
  - Diarrhoea [Unknown]
  - Nausea [Unknown]
  - Vomiting [Unknown]
  - Off label use [Unknown]
  - Cervical dysplasia [Unknown]
